FAERS Safety Report 23843998 (Version 2)
Quarter: 2024Q2

REPORT INFORMATION
  Report Type: Spontaneous
  Country: US (occurrence: US)
  Receive Date: 20240510
  Receipt Date: 20240530
  Transmission Date: 20240716
  Serious: Yes (Hospitalization, Other)
  Sender: FDA-Public Use
  Company Number: US-ANIPHARMA-2024-US-026119

PATIENT
  Sex: Female

DRUGS (1)
  1. CORTICOTROPIN [Suspect]
     Active Substance: CORTICOTROPIN
     Indication: Keratitis
     Dosage: 40 UNITS SUBCUTANEOUS INJECTION TWO TIMES WEEKLY
     Route: 058

REACTIONS (4)
  - Myocardial infarction [Unknown]
  - Surgery [Recovering/Resolving]
  - Bladder operation [Recovering/Resolving]
  - Cardiac pacemaker insertion [Recovering/Resolving]
